FAERS Safety Report 13591061 (Version 1)
Quarter: 2017Q2

REPORT INFORMATION
  Report Type: Spontaneous
  Country: US (occurrence: US)
  Receive Date: 20170528
  Receipt Date: 20170528
  Transmission Date: 20170830
  Serious: No
  Sender: FDA-Public Use
  Company Number: None

PATIENT
  Age: 31 Year
  Sex: Female
  Weight: 50.8 kg

DRUGS (3)
  1. COPPER IUD [Suspect]
     Active Substance: COPPER
  2. VITAMIN D [Concomitant]
     Active Substance: CHOLECALCIFEROL
  3. MULTIVITAMIN [Concomitant]
     Active Substance: VITAMINS

REACTIONS (4)
  - Fatigue [None]
  - Dizziness [None]
  - Influenza [None]
  - Feeling abnormal [None]

NARRATIVE: CASE EVENT DATE: 20150423
